FAERS Safety Report 17810704 (Version 2)
Quarter: 2020Q4

REPORT INFORMATION
  Report Type: Spontaneous
  Country: US (occurrence: US)
  Receive Date: 20200521
  Receipt Date: 20201117
  Transmission Date: 20210113
  Serious: Yes (Other)
  Sender: FDA-Public Use
  Company Number: US-ASTRAZENECA-2020SE64990

PATIENT
  Age: 30470 Day
  Sex: Male
  Weight: 94.3 kg

DRUGS (41)
  1. CLARITHROMYCIN. [Concomitant]
     Active Substance: CLARITHROMYCIN
  2. MAGNESIUM OXIDE. [Concomitant]
     Active Substance: MAGNESIUM OXIDE
  3. PROVENTIL [Concomitant]
     Active Substance: ALBUTEROL
  4. OXYCODONE [Concomitant]
     Active Substance: OXYCODONE
  5. AMIODARONE [Concomitant]
     Active Substance: AMIODARONE
  6. LOSARTAN. [Concomitant]
     Active Substance: LOSARTAN
  7. FINACEA [Concomitant]
     Active Substance: AZELAIC ACID
  8. GEMFIBROZIL. [Concomitant]
     Active Substance: GEMFIBROZIL
  9. ANORO ELLIPTA [Concomitant]
     Active Substance: UMECLIDINIUM BROMIDE\VILANTEROL TRIFENATATE
  10. NEXIUM [Suspect]
     Active Substance: ESOMEPRAZOLE MAGNESIUM
     Indication: GASTROOESOPHAGEAL REFLUX DISEASE
     Route: 048
     Dates: start: 2013, end: 2017
  11. METOPROLOL. [Concomitant]
     Active Substance: METOPROLOL
     Indication: HYPERTENSION
     Dates: start: 2013, end: 2018
  12. CLINDAMYCIN. [Concomitant]
     Active Substance: CLINDAMYCIN
  13. ZIPSOR [Concomitant]
     Active Substance: DICLOFENAC POTASSIUM
  14. CEPHALEXIN. [Concomitant]
     Active Substance: CEPHALEXIN
  15. HYDROMORPHONE [Concomitant]
     Active Substance: HYDROMORPHONE
  16. TESTOSTERONE. [Concomitant]
     Active Substance: TESTOSTERONE
  17. NEXIUM [Suspect]
     Active Substance: ESOMEPRAZOLE MAGNESIUM
     Indication: GASTROOESOPHAGEAL REFLUX DISEASE
     Route: 048
     Dates: start: 201305, end: 201808
  18. AMLODIPINE [Concomitant]
     Active Substance: AMLODIPINE BESYLATE
     Indication: HYPERTENSION
     Dates: start: 2017, end: 2018
  19. SIMVASTATIN. [Concomitant]
     Active Substance: SIMVASTATIN
     Indication: BLOOD CHOLESTEROL INCREASED
     Dates: start: 2013, end: 2018
  20. NASACORT AQ [Concomitant]
     Active Substance: TRIAMCINOLONE ACETONIDE
  21. FLECTOR [Concomitant]
     Active Substance: DICLOFENAC EPOLAMINE
  22. SPIRIVA [Concomitant]
     Active Substance: TIOTROPIUM BROMIDE MONOHYDRATE
  23. AZITHROMYCIN ANHYDROUS. [Concomitant]
     Active Substance: AZITHROMYCIN ANHYDROUS
  24. CIPROFLOXACIN. [Concomitant]
     Active Substance: CIPROFLOXACIN
  25. TERAZOSIN [Concomitant]
     Active Substance: TERAZOSIN HYDROCHLORIDE
  26. CLOPIDOGREL [Concomitant]
     Active Substance: CLOPIDOGREL BISULFATE
  27. MOVANTIK [Concomitant]
     Active Substance: NALOXEGOL OXALATE
  28. PRADAXA [Concomitant]
     Active Substance: DABIGATRAN ETEXILATE MESYLATE
  29. AMOXICILLIN. [Concomitant]
     Active Substance: AMOXICILLIN
  30. KLOR-CON [Concomitant]
     Active Substance: POTASSIUM CHLORIDE
  31. BUPRENORPHINE. [Concomitant]
     Active Substance: BUPRENORPHINE
  32. ACETAMINOPHEN-CODEINE [Concomitant]
     Active Substance: ACETAMINOPHEN\CODEINE PHOSPHATE
  33. PREDNISONE. [Concomitant]
     Active Substance: PREDNISONE
  34. ALBUTEROL SULFATE. [Concomitant]
     Active Substance: ALBUTEROL SULFATE
  35. ONDANSETRON [Concomitant]
     Active Substance: ONDANSETRON
  36. CHLORTHALIDONE. [Concomitant]
     Active Substance: CHLORTHALIDONE
  37. FINASTERIDE. [Concomitant]
     Active Substance: FINASTERIDE
  38. CARDURA [Concomitant]
     Active Substance: DOXAZOSIN MESYLATE
  39. HYDROCODONE-ACETAMINOPHEN [Concomitant]
     Active Substance: ACETAMINOPHEN\HYDROCODONE
  40. NYSTATIN. [Concomitant]
     Active Substance: NYSTATIN
  41. SULFAMETHOXAZOLE-TRIMETHOPRIM [Concomitant]
     Active Substance: SULFAMETHOXAZOLE\TRIMETHOPRIM

REACTIONS (2)
  - Renal failure [Unknown]
  - Chronic kidney disease [Not Recovered/Not Resolved]

NARRATIVE: CASE EVENT DATE: 20180514
